FAERS Safety Report 7609289-9 (Version None)
Quarter: 2011Q2

REPORT INFORMATION
  Report Type: 
  Country: None (occurrence: None)
  Receive Date: 20110606
  Receipt Date: 20110606
  Transmission Date: 20111010
  Serious: Yes (Other)
  Sender: FDA-Public Use
  Company Number: None

PATIENT
  Age: 65 Year
  Sex: Female
  Weight: 52.6173 kg

DRUGS (3)
  1. ORION CATHETER INSERTION KIT BENZALKONIUM PREP PAD TRIAD [Suspect]
  2. ORION CATHETER INSERTION KIT  POVIDINE IODINE PREP PAD TRIAD [Suspect]
     Indication: CAUDA EQUINA SYNDROME
     Dates: start: 20101201, end: 20110401
  3. ORION CATHETER INSERTION KIT  POVIDINE IODINE PREP PAD TRIAD [Suspect]
     Indication: NEUROGENIC BLADDER
     Dates: start: 20101201, end: 20110401

REACTIONS (2)
  - PRODUCT QUALITY ISSUE [None]
  - PRODUCT PACKAGING ISSUE [None]
